FAERS Safety Report 8914853 (Version 2)
Quarter: 2012Q4

REPORT INFORMATION
  Report Type: 
  Country: GB (occurrence: GB)
  Receive Date: 20121116
  Receipt Date: 20121212
  Transmission Date: 20130627
  Serious: Yes (Hospitalization, Other)
  Sender: FDA-Public Use
  Company Number: GB-TEVA-368738ISR

PATIENT
  Age: 20 Year
  Sex: Male

DRUGS (8)
  1. RISPERIDONE [Suspect]
     Indication: SCHIZOPHRENIA, PARANOID TYPE
     Dosage: 3 Milligram Daily;
     Route: 048
     Dates: end: 201108
  2. RISPERIDONE [Suspect]
     Indication: SCHIZOPHRENIA, PARANOID TYPE
     Dosage: 2 Milligram Daily;
     Route: 048
  3. RISPERIDONE [Suspect]
     Indication: SCHIZOPHRENIA, PARANOID TYPE
     Dosage: 7 Milligram Daily;
     Route: 048
     Dates: end: 201206
  4. RISPERIDONE [Suspect]
     Indication: SCHIZOPHRENIA, PARANOID TYPE
     Route: 048
     Dates: start: 201108, end: 201111
  5. RISPERIDONE [Suspect]
     Indication: SCHIZOPHRENIA, PARANOID TYPE
     Dosage: 1 Milligram Daily;
     Route: 048
     Dates: start: 201111, end: 201201
  6. RISPERIDONE [Suspect]
     Indication: SCHIZOPHRENIA, PARANOID TYPE
  7. CANNABIS [Suspect]
     Indication: PRODUCT USED FOR UNKNOWN INDICATION
     Dosage: Dosage Form: Unspecified
     Route: 065
     Dates: start: 201108
  8. CANNABIS [Suspect]
     Indication: PRODUCT USED FOR UNKNOWN INDICATION

REACTIONS (12)
  - Hallucination [Unknown]
  - Feeling abnormal [Unknown]
  - Insomnia [Unknown]
  - Aggression [Unknown]
  - Apathy [Unknown]
  - Lethargy [Recovered/Resolved]
  - Decreased activity [Unknown]
  - Irritability [Recovered/Resolved]
  - Treatment noncompliance [Unknown]
  - Inadequate diet [Unknown]
  - Weight decreased [Unknown]
  - Abnormal behaviour [Unknown]
